FAERS Safety Report 10877471 (Version 4)
Quarter: 2015Q1

REPORT INFORMATION
  Report Type: Spontaneous
  Country: JP (occurrence: None)
  Receive Date: 20150224
  Receipt Date: 20150320
  Transmission Date: 20150721
  Serious: Yes (Hospitalization, Other)
  Sender: FDA-Public Use
  Company Number: 2015FE00560

PATIENT
  Age: 90 Year
  Sex: Male

DRUGS (5)
  1. FLIVAS (NAFTOPIDIL) [Concomitant]
  2. ZOLADEX [Concomitant]
     Active Substance: GOSERELIN ACETATE
  3. GONAX [Suspect]
     Active Substance: DEGARELIX
     Indication: PROSTATE CANCER
     Route: 058
     Dates: start: 20130408
  4. GONAX (DEGARELIX) POWDER AND SOLVENT FOR SOLUTION FOR INJECTION, 120MG [Suspect]
     Active Substance: DEGARELIX
     Indication: PROSTATE CANCER
     Dosage: 240 MG, ONCE/SINGLE, SUBCUTANEOUS?
     Route: 058
     Dates: start: 20130311, end: 20130311
  5. LEUPLIN [Concomitant]
     Active Substance: LEUPROLIDE ACETATE

REACTIONS (3)
  - Injection site cellulitis [None]
  - Post procedural infection [None]
  - Cellulitis [None]

NARRATIVE: CASE EVENT DATE: 20150207
